FAERS Safety Report 5858356-9 (Version None)
Quarter: 2008Q3

REPORT INFORMATION
  Report Type: 
  Country: None (occurrence: None)
  Receive Date: 20080826
  Receipt Date: 20080819
  Transmission Date: 20090109
  Serious: Yes (Other)
  Sender: FDA-Public Use
  Company Number: PHBS2008CH05460

PATIENT
  Age: 57 Year
  Sex: Male

DRUGS (4)
  1. DICLOFENAC SODIUM [Suspect]
     Dosage: 75 MG, BID
  2. ASPIRIN [Suspect]
     Indication: ARTERIOSCLEROSIS
     Dosage: 100 MG/DAY
  3. BONIVA [Suspect]
     Indication: OSTEOPENIA
     Dosage: 150 MG ONCE PER MONTH
  4. CALCIMAGON-D3 [Suspect]

REACTIONS (1)
  - COLONIC STENOSIS [None]
